FAERS Safety Report 25273106 (Version 1)
Quarter: 2025Q2

REPORT INFORMATION
  Report Type: Spontaneous
  Country: HU (occurrence: HU)
  Receive Date: 20250506
  Receipt Date: 20250506
  Transmission Date: 20250716
  Serious: Yes (Other)
  Sender: NOVARTIS
  Company Number: HU-002147023-NVSC2025HU070418

PATIENT
  Sex: Male

DRUGS (19)
  1. SACUBITRIL\VALSARTAN [Suspect]
     Active Substance: SACUBITRIL\VALSARTAN
     Indication: Dilated cardiomyopathy
     Route: 065
     Dates: start: 2022, end: 202211
  2. SACUBITRIL\VALSARTAN [Suspect]
     Active Substance: SACUBITRIL\VALSARTAN
     Indication: Pulmonary arterial pressure increased
     Route: 065
     Dates: start: 202211
  3. INCLISIRAN [Suspect]
     Active Substance: INCLISIRAN
     Indication: Low density lipoprotein increased
     Route: 065
     Dates: start: 2023
  4. BISOPROLOL [Concomitant]
     Active Substance: BISOPROLOL
     Indication: Dilated cardiomyopathy
     Dosage: 5 MG, QD
     Route: 065
     Dates: start: 2022
  5. BISOPROLOL [Concomitant]
     Active Substance: BISOPROLOL
     Indication: Pulmonary arterial pressure increased
     Dosage: 2.5 MG, QD
     Route: 065
     Dates: start: 2022
  6. SPIRONOLACTONE [Concomitant]
     Active Substance: SPIRONOLACTONE
     Indication: Dilated cardiomyopathy
     Route: 065
     Dates: start: 2022
  7. SPIRONOLACTONE [Concomitant]
     Active Substance: SPIRONOLACTONE
     Indication: Pulmonary arterial pressure increased
  8. DAPAGLIFLOZIN [Concomitant]
     Active Substance: DAPAGLIFLOZIN
     Indication: Dilated cardiomyopathy
     Route: 065
     Dates: start: 2022
  9. DAPAGLIFLOZIN [Concomitant]
     Active Substance: DAPAGLIFLOZIN
     Indication: Pulmonary arterial pressure increased
  10. FUROSEMIDE [Concomitant]
     Active Substance: FUROSEMIDE
     Indication: Dilated cardiomyopathy
     Route: 065
     Dates: start: 2022, end: 202211
  11. FUROSEMIDE [Concomitant]
     Active Substance: FUROSEMIDE
     Indication: Pulmonary arterial pressure increased
     Route: 065
     Dates: start: 202211, end: 2023
  12. CLOPIDOGREL [Concomitant]
     Active Substance: CLOPIDOGREL BISULFATE
     Indication: Dilated cardiomyopathy
     Route: 065
     Dates: start: 2022
  13. CLOPIDOGREL [Concomitant]
     Active Substance: CLOPIDOGREL BISULFATE
     Indication: Pulmonary arterial pressure increased
  14. ROSUVASTATIN [Concomitant]
     Active Substance: ROSUVASTATIN
     Indication: Blood cholesterol increased
     Route: 065
     Dates: start: 2022
  15. ROSUVASTATIN [Concomitant]
     Active Substance: ROSUVASTATIN
     Route: 065
     Dates: end: 2023
  16. ROSUVASTATIN [Concomitant]
     Active Substance: ROSUVASTATIN
     Route: 065
     Dates: start: 2023
  17. EZETIMIBE [Concomitant]
     Active Substance: EZETIMIBE
     Indication: Blood cholesterol increased
     Route: 065
     Dates: start: 2022
  18. EZETIMIBE [Concomitant]
     Active Substance: EZETIMIBE
     Route: 065
  19. EZETIMIBE [Concomitant]
     Active Substance: EZETIMIBE
     Route: 065
     Dates: start: 2023

REACTIONS (6)
  - Mitral valve incompetence [Unknown]
  - Tricuspid valve incompetence [Unknown]
  - Cardiac discomfort [Unknown]
  - Blood creatine phosphokinase increased [Unknown]
  - Chest pain [Unknown]
  - Off label use [Unknown]

NARRATIVE: CASE EVENT DATE: 20221101
